FAERS Safety Report 23956924 (Version 2)
Quarter: 2024Q3

REPORT INFORMATION
  Report Type: Spontaneous
  Country: NO (occurrence: NO)
  Receive Date: 20240610
  Receipt Date: 20240709
  Transmission Date: 20241017
  Serious: Yes (Death, Other)
  Sender: TAKEDA
  Company Number: NO-TAKEDA-2024TUS056706

PATIENT
  Sex: Male

DRUGS (1)
  1. ENTYVIO [Suspect]
     Active Substance: VEDOLIZUMAB
     Indication: Colitis ulcerative
     Dosage: UNK
     Route: 065
     Dates: start: 2014, end: 2018

REACTIONS (4)
  - Colon dysplasia [Fatal]
  - Colon cancer metastatic [Fatal]
  - Metastases to liver [Fatal]
  - Colitis [Unknown]

NARRATIVE: CASE EVENT DATE: 20180101
